FAERS Safety Report 7421405-0 (Version None)
Quarter: 2011Q2

REPORT INFORMATION
  Report Type: 
  Country: None (occurrence: None)
  Receive Date: 20110418
  Receipt Date: 20110407
  Transmission Date: 20111010
  Serious: Yes (Hospitalization)
  Sender: FDA-Public Use
  Company Number: BR-ASTRAZENECA-2011SE20258

PATIENT
  Age: 68 Year
  Sex: Female

DRUGS (3)
  1. POLYMEDICATED [Concomitant]
  2. ATACAND HCT [Suspect]
     Dosage: 16/12.5 MG,
     Route: 048
  3. CRESTOR [Suspect]
     Route: 048

REACTIONS (1)
  - CORONARY ARTERY OCCLUSION [None]
